FAERS Safety Report 6186769-7 (Version None)
Quarter: 2009Q2

REPORT INFORMATION
  Report Type: 
  Country: None (occurrence: None)
  Receive Date: 20090512
  Receipt Date: 20090428
  Transmission Date: 20091009
  Serious: Yes (Death)
  Sender: FDA-Public Use
  Company Number: ES-ROCHE-630351

PATIENT
  Age: 56 Year
  Sex: Male

DRUGS (5)
  1. PEG-INTERFERON ALFA 2A (RO 25-8310) [Suspect]
     Indication: HEPATITIS C
     Route: 058
     Dates: start: 20080227, end: 20090218
  2. RIBAVIRIN [Interacting]
     Indication: HEPATITIS C
     Route: 048
     Dates: start: 20080227, end: 20090218
  3. ACOVIL [Concomitant]
  4. ORFIDAL [Concomitant]
  5. PREVENCOR [Concomitant]

REACTIONS (1)
  - CEREBRAL HAEMORRHAGE [None]
